FAERS Safety Report 16579539 (Version 1)
Quarter: 2019Q3

REPORT INFORMATION
  Report Type: Spontaneous
  Country: US (occurrence: US)
  Receive Date: 20190716
  Receipt Date: 20190716
  Transmission Date: 20191004
  Serious: No
  Sender: FDA-Public Use
  Company Number: US-TRIS PHARMA, INC.-19US000088

PATIENT

DRUGS (2)
  1. ROBITUSSIN NIGTH-TIME [Concomitant]
     Indication: COUGH
     Dosage: UNK, PRN
     Route: 048
  2. DEXTROMETHORPHAN POLISTIREX [Suspect]
     Active Substance: DEXTROMETHORPHAN HYDROBROMIDE
     Indication: COUGH
     Dosage: UNK, EVERY NIGHT
     Route: 048
     Dates: start: 2017

REACTIONS (4)
  - Incorrect product administration duration [Recovered/Resolved]
  - Therapeutic drug monitoring analysis not performed [Unknown]
  - Intentional product use issue [Unknown]
  - Therapeutic product ineffective for unapproved indication [Unknown]
